FAERS Safety Report 17464303 (Version 4)
Quarter: 2020Q3

REPORT INFORMATION
  Report Type: Report from Study
  Country: US (occurrence: US)
  Receive Date: 20200226
  Receipt Date: 20200709
  Transmission Date: 20201102
  Serious: No
  Sender: FDA-Public Use
  Company Number: NVSC2020US053439

PATIENT
  Sex: Male
  Weight: 88.45 kg

DRUGS (1)
  1. ILARIS [Suspect]
     Active Substance: CANAKINUMAB
     Indication: MONOCLONAL GAMMOPATHY
     Dosage: 150 MG(EVERY 8 WEEKS)
     Route: 058

REACTIONS (3)
  - Product use in unapproved indication [Unknown]
  - Pain [Unknown]
  - Urticaria [Unknown]
